FAERS Safety Report 14988723 (Version 2)
Quarter: 2018Q2

REPORT INFORMATION
  Report Type: Spontaneous
  Country: US (occurrence: US)
  Receive Date: 20180608
  Receipt Date: 20180608
  Transmission Date: 20180711
  Serious: Yes (Other)
  Sender: FDA-Public Use
  Company Number: US-AMGEN-USASP2018068207

PATIENT
  Age: 64 Year
  Sex: Female
  Weight: 48.6 kg

DRUGS (10)
  1. PEMBROLIZUMAB. [Concomitant]
     Active Substance: PEMBROLIZUMAB
     Dosage: UNK
  2. LISINOPRIL. [Concomitant]
     Active Substance: LISINOPRIL
     Indication: HYPERTENSION
     Dosage: UNK
  3. BLINCYTO [Suspect]
     Active Substance: BLINATUMOMAB
     Indication: B PRECURSOR TYPE ACUTE LEUKAEMIA
     Dosage: 28 MUG, QD
     Route: 042
     Dates: start: 20180417
  4. ALLOPURINOL. [Concomitant]
     Active Substance: ALLOPURINOL
     Dosage: 300 MG, QD
     Route: 048
  5. CHOLECALCIFEROL [Concomitant]
     Active Substance: CHOLECALCIFEROL
     Dosage: 1000 UNIT, QD
     Route: 048
  6. BLINCYTO [Suspect]
     Active Substance: BLINATUMOMAB
     Dosage: 9 MUG, QD
     Route: 042
     Dates: start: 20180504
  7. ACYCLOVIR. [Concomitant]
     Active Substance: ACYCLOVIR
     Dosage: 800 MG, Q12H
     Route: 048
  8. LATANOPROST. [Concomitant]
     Active Substance: LATANOPROST
     Dosage: 1 GTT (0.005%), QHS
     Route: 047
  9. VITAMIN B12 [Concomitant]
     Active Substance: CYANOCOBALAMIN
     Dosage: 1000 MUG, QD
     Route: 048
  10. CALCITRATE PLUS D [Concomitant]
     Dosage: 1 DF (315MG-250 INTL UNITS), BID
     Route: 048

REACTIONS (5)
  - Pyrexia [Unknown]
  - Headache [Unknown]
  - Liver injury [Recovered/Resolved]
  - Haemorrhoids [Unknown]
  - Flushing [Unknown]

NARRATIVE: CASE EVENT DATE: 20180417
